FAERS Safety Report 4796543-1 (Version None)
Quarter: 2005Q3

REPORT INFORMATION
  Report Type: 
  Country: None (occurrence: None)
  Receive Date: 20050916
  Receipt Date: 20041013
  Transmission Date: 20060218
  Serious: Yes (Other)
  Sender: FDA-Public Use
  Company Number: US-JNJFOC-20041004529

PATIENT
  Age: 35 Year
  Sex: Male
  Weight: 65.7716 kg

DRUGS (5)
  1. TOPAMAX [Suspect]
     Indication: BACK PAIN
     Dosage: 500 MG, 1 IN 1 DAY,ORAL; SEE IMAGE
     Route: 048
     Dates: start: 20030101
  2. TOPAMAX [Suspect]
     Indication: BACK PAIN
     Dosage: 500 MG, 1 IN 1 DAY,ORAL; SEE IMAGE
     Route: 048
     Dates: start: 20031201
  3. HYDROCODONE (HYDROCODONE) [Concomitant]
  4. VALDECOXIB [Concomitant]
  5. FIOROCET (AXOTAL (OLD FORM)) [Concomitant]

REACTIONS (7)
  - AGITATION [None]
  - AMNESIA [None]
  - CONFUSIONAL STATE [None]
  - DEPRESSED MOOD [None]
  - MOOD ALTERED [None]
  - NAUSEA [None]
  - VOMITING [None]
